FAERS Safety Report 10235874 (Version 1)
Quarter: 2014Q2

REPORT INFORMATION
  Report Type: Spontaneous
  Country: US (occurrence: US)
  Receive Date: 20140613
  Receipt Date: 20140613
  Transmission Date: 20141212
  Serious: No
  Sender: FDA-Public Use
  Company Number: US-BAYER-2014-088863

PATIENT
  Sex: Male
  Weight: 118 kg

DRUGS (2)
  1. ALEVE TABLET [Suspect]
     Indication: MIGRAINE
     Dosage: 2-3 DF, PRN
     Route: 048
  2. ALEVE TABLET [Suspect]
     Indication: MIGRAINE
     Dosage: 3 DF, ONCE
     Route: 048

REACTIONS (2)
  - Drug ineffective [None]
  - Inappropriate schedule of drug administration [None]
